FAERS Safety Report 15342006 (Version 1)
Quarter: 2018Q3

REPORT INFORMATION
  Report Type: Spontaneous
  Country: US (occurrence: US)
  Receive Date: 20180828
  Receipt Date: 20180828
  Transmission Date: 20181010
  Serious: Yes (Other)
  Sender: FDA-Public Use
  Company Number: None

PATIENT
  Age: 53 Year
  Sex: Male
  Weight: 106.2 kg

DRUGS (6)
  1. METFORMIN [Concomitant]
     Active Substance: METFORMIN HYDROCHLORIDE
  2. BYSTOLIC [Concomitant]
     Active Substance: NEBIVOLOL HYDROCHLORIDE
  3. TESTOSTERONE. [Concomitant]
     Active Substance: TESTOSTERONE
  4. LOSARTAN. [Concomitant]
     Active Substance: LOSARTAN
  5. POTASSIUM [Concomitant]
     Active Substance: POTASSIUM
  6. BYDUREON BCISE [Suspect]
     Active Substance: EXENATIDE
     Indication: TYPE 2 DIABETES MELLITUS
     Dosage: ?          QUANTITY:1 INJECTION(S);OTHER FREQUENCY:WEEKLY;?
     Route: 058
     Dates: start: 20180730, end: 20180827

REACTIONS (3)
  - Vomiting [None]
  - Heart rate increased [None]
  - Pyrexia [None]

NARRATIVE: CASE EVENT DATE: 20180827
